FAERS Safety Report 5781848-8 (Version None)
Quarter: 2008Q2

REPORT INFORMATION
  Report Type: 
  Country: None (occurrence: None)
  Receive Date: 20080618
  Receipt Date: 20080602
  Transmission Date: 20081010
  Serious: Yes (Hospitalization)
  Sender: FDA-Public Use
  Company Number: DA_31954_2008

PATIENT
  Age: 64 Year
  Sex: Female

DRUGS (11)
  1. ORFIDAL (ORFIDAL - LORAZEPAM) (1 MG, 1 MG) (NOT SPECIFIED) [Suspect]
     Indication: DRUG USE FOR UNKNOWN INDICATION
     Dosage: (1 MG QD ORAL, (1 MG QD ORAL)
     Route: 048
     Dates: start: 19940101
  2. AKINETON/00079502/ (AKINETON BIPERIDEN HYROCHLORIDE) (NOT SPECIFIED) [Suspect]
     Indication: DRUG USE FOR UNKNOWN INDICATION
     Dosage: (DF ORAL), (DF ORAL)
     Route: 048
     Dates: start: 20060101, end: 20080315
  3. AKINETON/00079502/ (AKINETON BIPERIDEN HYROCHLORIDE) (NOT SPECIFIED) [Suspect]
     Indication: DRUG USE FOR UNKNOWN INDICATION
     Dosage: (DF ORAL), (DF ORAL)
     Route: 048
     Dates: start: 20080324
  4. LITHIUM CARBONATE [Concomitant]
  5. ANTABUSE [Suspect]
     Indication: ALCOHOL DETOXIFICATION
     Dosage: (250 MG QD ORAL), (250 MG QD ORAL)
     Route: 048
     Dates: start: 20070901
  6. ETUMINA (EUTMINA - CLOTIAPINE) (NOT SPECIFIED) [Suspect]
     Indication: BIPOLAR DISORDER
     Dosage: (20 MG QD ORAL), (20 MG QD ORAL)
     Route: 048
     Dates: start: 19940101, end: 20080315
  7. ETUMINA (EUTMINA - CLOTIAPINE) (NOT SPECIFIED) [Suspect]
     Indication: BIPOLAR DISORDER
     Dosage: (20 MG QD ORAL), (20 MG QD ORAL)
     Route: 048
     Dates: start: 20080324
  8. HALOPERIDOL [Suspect]
     Indication: DISORIENTATION
     Dosage: (10 MG TID INTRAVENOUS (NOT OTHERWISE SPECIFIED), (10 MG TID INTRAVENOUS (NOT OTHERWISE SPECIFIED ))
     Route: 042
     Dates: start: 20080310, end: 20080315
  9. HALOPERIDOL [Suspect]
     Indication: DISORIENTATION
     Dosage: (10 MG TID INTRAVENOUS (NOT OTHERWISE SPECIFIED), (10 MG TID INTRAVENOUS (NOT OTHERWISE SPECIFIED ))
     Route: 042
     Dates: start: 20080324
  10. VANDRAL (VANDRAL - VENLAFAXINE HYDROCHLORIDE) (NOT SPECIFIED) [Suspect]
     Indication: BIPOLAR DISORDER
     Dosage: (150 MG BID ORAL), (150 MG BID ORAL)
     Route: 048
     Dates: start: 20000101, end: 20080315
  11. VANDRAL (VANDRAL - VENLAFAXINE HYDROCHLORIDE) (NOT SPECIFIED) [Suspect]
     Indication: BIPOLAR DISORDER
     Dosage: (150 MG BID ORAL), (150 MG BID ORAL)
     Route: 048
     Dates: start: 20080324

REACTIONS (9)
  - BLOOD CREATINE PHOSPHOKINASE INCREASED [None]
  - BLOOD OSMOLARITY ABNORMAL [None]
  - CONFUSIONAL STATE [None]
  - DISORIENTATION [None]
  - EXPRESSIVE LANGUAGE DISORDER [None]
  - HYPERNATRAEMIA [None]
  - METABOLIC ACIDOSIS [None]
  - NEUROLEPTIC MALIGNANT SYNDROME [None]
  - PYREXIA [None]
